FAERS Safety Report 21244314 (Version 8)
Quarter: 2025Q3

REPORT INFORMATION
  Report Type: Spontaneous
  Country: CA (occurrence: CA)
  Receive Date: 20220823
  Receipt Date: 20250925
  Transmission Date: 20251020
  Serious: Yes (Death, Life-Threatening, Hospitalization, Disabling, Congenital Anomaly)
  Sender: ROCHE
  Company Number: CA-ROCHE-3162934

PATIENT
  Age: 44 Year
  Sex: Female
  Weight: 97.0 kg

DRUGS (2)
  1. RITUXIMAB [Suspect]
     Active Substance: RITUXIMAB
     Indication: Rheumatoid arthritis
     Route: 042
  2. TOCILIZUMAB [Suspect]
     Active Substance: TOCILIZUMAB
     Indication: Product used for unknown indication
     Route: 065

REACTIONS (116)
  - Abdominal discomfort [Unknown]
  - Alopecia [Unknown]
  - Arthropathy [Unknown]
  - Asthma [Unknown]
  - Autoimmune disorder [Unknown]
  - Blister [Unknown]
  - Chest pain [Unknown]
  - Condition aggravated [Fatal]
  - Confusional state [Unknown]
  - Contusion [Unknown]
  - Deep vein thrombosis postoperative [Unknown]
  - Discomfort [Fatal]
  - Drug hypersensitivity [Unknown]
  - Drug ineffective [Fatal]
  - Drug intolerance [Fatal]
  - Duodenal ulcer perforation [Unknown]
  - Dyspnoea [Unknown]
  - Fatigue [Fatal]
  - Folliculitis [Unknown]
  - Gait inability [Unknown]
  - Gastrointestinal disorder [Unknown]
  - Glossodynia [Unknown]
  - Hand deformity [Unknown]
  - Helicobacter infection [Unknown]
  - Hepatic enzyme increased [Unknown]
  - Impaired healing [Unknown]
  - Infection [Unknown]
  - Infusion related reaction [Unknown]
  - Irritable bowel syndrome [Unknown]
  - Lower limb fracture [Unknown]
  - Lower respiratory tract infection [Fatal]
  - Maternal exposure during pregnancy [Unknown]
  - Muscle injury [Unknown]
  - Musculoskeletal stiffness [Fatal]
  - Nasopharyngitis [Unknown]
  - Pemphigus [Fatal]
  - Pericarditis [Fatal]
  - Peripheral swelling [Fatal]
  - Pruritus [Unknown]
  - Pyrexia [Unknown]
  - Rash [Fatal]
  - Road traffic accident [Unknown]
  - Sinusitis [Unknown]
  - Sleep disorder due to general medical condition, insomnia type [Unknown]
  - Stomatitis [Fatal]
  - Swelling [Fatal]
  - Synovitis [Fatal]
  - Systemic lupus erythematosus [Fatal]
  - Therapy non-responder [Unknown]
  - Treatment failure [Unknown]
  - Urticaria [Fatal]
  - Weight increased [Fatal]
  - Wound [Fatal]
  - Anti-cyclic citrullinated peptide antibody positive [Unknown]
  - Arthralgia [Unknown]
  - Asthenia [Unknown]
  - Blood cholesterol increased [Unknown]
  - Bursitis [Unknown]
  - C-reactive protein abnormal [Unknown]
  - Contraindicated product administered [Unknown]
  - Depression [Unknown]
  - Dry mouth [Unknown]
  - Facet joint syndrome [Unknown]
  - General physical health deterioration [Unknown]
  - Headache [Unknown]
  - Hypersensitivity [Unknown]
  - Hypertension [Unknown]
  - Inflammation [Unknown]
  - Injury [Unknown]
  - Joint range of motion decreased [Unknown]
  - Joint swelling [Unknown]
  - Lip dry [Unknown]
  - Liver disorder [Unknown]
  - Lung disorder [Unknown]
  - Medication error [Unknown]
  - Muscle spasms [Unknown]
  - Night sweats [Fatal]
  - Obesity [Unknown]
  - Oedema [Fatal]
  - Oedema peripheral [Fatal]
  - Off label use [Unknown]
  - Osteoarthritis [Fatal]
  - Pain [Fatal]
  - Paraesthesia [Fatal]
  - Pain in extremity [Fatal]
  - Peripheral venous disease [Fatal]
  - Rheumatoid factor positive [Unknown]
  - Sleep disorder [Fatal]
  - Rheumatoid arthritis [Fatal]
  - Musculoskeletal pain [Unknown]
  - Product use issue [Fatal]
  - Decreased appetite [Unknown]
  - Fibromyalgia [Unknown]
  - Porphyria acute [Unknown]
  - Prescribed overdose [Unknown]
  - Psoriatic arthropathy [Fatal]
  - Rectal haemorrhage [Unknown]
  - Weight decreased [Unknown]
  - Wheezing [Fatal]
  - Wound infection [Unknown]
  - X-ray abnormal [Unknown]
  - Abdominal pain [Fatal]
  - Adverse drug reaction [Fatal]
  - Liver injury [Fatal]
  - Malaise [Fatal]
  - Migraine [Fatal]
  - Muscular weakness [Fatal]
  - Myositis [Fatal]
  - Neck pain [Fatal]
  - Onychomadesis [Fatal]
  - Pneumonia [Fatal]
  - Rheumatic fever [Fatal]
  - Taste disorder [Fatal]
  - Therapeutic product effect incomplete [Fatal]
  - Type 2 diabetes mellitus [Fatal]
  - Vomiting [Fatal]
